FAERS Safety Report 10279702 (Version 1)
Quarter: 2014Q3

REPORT INFORMATION
  Report Type: Spontaneous
  Country: GB (occurrence: None)
  Receive Date: 20140702
  Receipt Date: 20140702
  Transmission Date: 20150326
  Serious: Yes (Other)
  Sender: FDA-Public Use
  Company Number: 2411260

PATIENT
  Age: 35 Year
  Sex: Male
  Weight: 107.49 kg

DRUGS (3)
  1. (SUXAMETHONIUM) [Concomitant]
  2. (THIOPENTONE /00053401/) [Concomitant]
  3. ATRACURIUM BESILATE [Suspect]
     Active Substance: ATRACURIUM BESYLATE
     Indication: NEUROMUSCULAR BLOCKADE
     Dosage: (NOT OTHERWISE SPECIFIED)
     Route: 042

REACTIONS (3)
  - Flushing [None]
  - Wheezing [None]
  - Bronchospasm [None]
